FAERS Safety Report 15988653 (Version 1)
Quarter: 2019Q1

REPORT INFORMATION
  Report Type: Spontaneous
  Country: ES (occurrence: ES)
  Receive Date: 20190221
  Receipt Date: 20190221
  Transmission Date: 20190418
  Serious: Yes (Other)
  Sender: FDA-Public Use
  Company Number: ES-ACCORD-108348

PATIENT
  Age: 62 Year
  Sex: Female

DRUGS (3)
  1. ZOLEDRONIC ACID [Suspect]
     Active Substance: ZOLEDRONIC ACID
     Indication: OSTEOPOROSIS
     Route: 042
     Dates: start: 20180301, end: 20180301
  2. MASTICAL D [Concomitant]
     Indication: OSTEOPOROSIS
     Dosage: STRENGTH: 500 MG / 800 UI, 30 TABLETS
     Route: 048
     Dates: start: 2017
  3. HIDROFEROL [Concomitant]
     Active Substance: CALCIFEDIOL
     Indication: OSTEOPOROSIS
     Dosage: STRENGTH:  0.266 MG,  5 CAPSULES (BLISTER PVC / PVDC-ALUMINUM)
     Route: 048
     Dates: start: 20171101

REACTIONS (1)
  - Pericarditis [Recovered/Resolved]

NARRATIVE: CASE EVENT DATE: 20180302
